FAERS Safety Report 4764839-5 (Version None)
Quarter: 2005Q3

REPORT INFORMATION
  Report Type: 
  Country: None (occurrence: None)
  Receive Date: 20050909
  Receipt Date: 20050401
  Transmission Date: 20060218
  Serious: Yes (Other)
  Sender: FDA-Public Use
  Company Number: GB-BRISTOL-MYERS SQUIBB COMPANY-13102728

PATIENT
  Age: 42 Year
  Sex: Male

DRUGS (9)
  1. SUSTIVA [Suspect]
     Route: 048
     Dates: start: 19980801
  2. VIDEX [Suspect]
     Route: 048
     Dates: start: 19960101, end: 19970301
  3. ZERIT [Suspect]
     Route: 048
     Dates: start: 19970301
  4. LAMIVUDINE [Suspect]
     Dates: start: 19970301
  5. RITONAVIR [Suspect]
     Dates: start: 19970301
  6. INDINAVIR [Suspect]
  7. ABACAVIR [Suspect]
     Dates: start: 19980801
  8. TENOFOVIR [Suspect]
     Dates: start: 20031201
  9. ZIDOVUDINE [Concomitant]
     Dates: start: 19930101

REACTIONS (6)
  - ACQUIRED IMMUNODEFICIENCY SYNDROME [None]
  - ADRENAL INSUFFICIENCY [None]
  - CYTOMEGALOVIRUS CHORIORETINITIS [None]
  - HYPOGONADISM [None]
  - LIPOATROPHY [None]
  - LIPODYSTROPHY ACQUIRED [None]
